FAERS Safety Report 9065628 (Version 1)
Quarter: 2013Q1

REPORT INFORMATION
  Report Type: Report from Study
  Country: US (occurrence: US)
  Receive Date: 20130131
  Receipt Date: 20130131
  Transmission Date: 20140127
  Serious: No
  Sender: FDA-Public Use
  Company Number: US-ABBOTT-12P-163-1023346-00

PATIENT
  Sex: Female

DRUGS (7)
  1. HUMIRA [Suspect]
     Indication: PSORIATIC ARTHROPATHY
  2. LYRICA [Concomitant]
     Indication: NEUROPATHY PERIPHERAL
  3. MIRAPEX-GENERIC [Concomitant]
     Indication: RESTLESS LEGS SYNDROME
  4. MOBIC [Concomitant]
     Indication: PSORIATIC ARTHROPATHY
  5. KRILL OIL [Concomitant]
     Indication: SUPPLEMENTATION THERAPY
  6. PREVASTATIN [Concomitant]
     Indication: BLOOD CHOLESTEROL INCREASED
  7. FLEXERIL [Concomitant]
     Indication: PSORIATIC ARTHROPATHY

REACTIONS (1)
  - Scleroderma [Not Recovered/Not Resolved]
